FAERS Safety Report 6431793-X (Version None)
Quarter: 2009Q4

REPORT INFORMATION
  Report Type: 
  Country: None (occurrence: None)
  Receive Date: 20091104
  Receipt Date: 20091023
  Transmission Date: 20100525
  Serious: Yes (Other)
  Sender: FDA-Public Use
  Company Number: 418862

PATIENT
  Age: 10 Month
  Sex: Female

DRUGS (1)
  1. MIDAZOLAM HYDROCHLORIDE [Suspect]
     Dates: end: 20061031

REACTIONS (2)
  - ASPHYXIA [None]
  - CARDIAC ARREST [None]
